FAERS Safety Report 8172809 (Version 3)
Quarter: 2014Q1

REPORT INFORMATION
  Report Type: Spontaneous
  Country: US (occurrence: US)
  Receive Date: 20111007
  Receipt Date: 20140110
  Transmission Date: 20141002
  Serious: Yes (Hospitalization)
  Sender: FDA-Public Use
  Company Number: US-GLAXOSMITHKLINE-B0753432A

PATIENT
  Age: 50 Year
  Sex: Female
  Weight: 114.5 kg

DRUGS (8)
  1. AVANDIA [Suspect]
     Indication: DIABETES MELLITUS
     Dosage: 8MG PER DAY
     Route: 048
     Dates: start: 200706
  2. AVANDAMET [Suspect]
     Indication: DIABETES MELLITUS
     Route: 048
     Dates: end: 200712
  3. INSULIN [Concomitant]
  4. STARLIX [Concomitant]
     Dates: end: 200712
  5. CRESTOR [Concomitant]
  6. NASONEX [Concomitant]
  7. GLYBURIDE [Concomitant]
  8. ASMANEX [Concomitant]

REACTIONS (2)
  - Cerebrovascular accident [Not Recovered/Not Resolved]
  - Hypertension [Unknown]
